FAERS Safety Report 21529488 (Version 1)
Quarter: 2022Q4

REPORT INFORMATION
  Report Type: Spontaneous
  Country: CN (occurrence: CN)
  Receive Date: 20221031
  Receipt Date: 20221031
  Transmission Date: 20230112
  Serious: Yes (Hospitalization, Other)
  Sender: FDA-Public Use
  Company Number: CN-AstraZeneca-2022A351169

PATIENT
  Age: 83 Year
  Sex: Male

DRUGS (1)
  1. METOPROLOL SUCCINATE [Suspect]
     Active Substance: METOPROLOL SUCCINATE
     Indication: Ventricular arrhythmia
     Route: 048
     Dates: start: 20221009, end: 20221011

REACTIONS (4)
  - Atrioventricular block complete [Unknown]
  - Bundle branch block right [Unknown]
  - Nodal rhythm [Unknown]
  - Ventricular extrasystoles [Unknown]

NARRATIVE: CASE EVENT DATE: 20221009
